FAERS Safety Report 4429470-X (Version None)
Quarter: 2004Q3

REPORT INFORMATION
  Report Type: 
  Country: None (occurrence: None)
  Receive Date: 20040816
  Receipt Date: 20040802
  Transmission Date: 20050211
  Serious: Yes (Disabling)
  Sender: FDA-Public Use
  Company Number: 2004AP03876

PATIENT
  Age: 49 Year
  Sex: Female

DRUGS (8)
  1. IRESSA [Suspect]
     Indication: LUNG ADENOCARCINOMA
     Dosage: 250 MG DAILY PO
     Route: 048
     Dates: start: 20020930, end: 20040108
  2. IRESSA [Suspect]
     Indication: LUNG NEOPLASM MALIGNANT
     Dosage: 250 MG DAILY PO
     Route: 048
     Dates: start: 20020930, end: 20040108
  3. CISPLATIN [Suspect]
     Dates: start: 20040201, end: 20010401
  4. DOCETAXEL [Suspect]
     Dates: start: 20010201, end: 20010401
  5. IRINOTECAN [Suspect]
     Dates: start: 20010201, end: 20010401
  6. PURSENNID [Concomitant]
  7. RINDERON [Concomitant]
  8. RADIATION THERAPY [Concomitant]

REACTIONS (6)
  - ACUTE PROMYELOCYTIC LEUKAEMIA [None]
  - HAEMOGLOBIN DECREASED [None]
  - LUNG ADENOCARCINOMA RECURRENT [None]
  - PLATELET COUNT DECREASED [None]
  - RASH [None]
  - WHITE BLOOD CELL COUNT DECREASED [None]
